FAERS Safety Report 11266429 (Version 2)
Quarter: 2015Q3

REPORT INFORMATION
  Report Type: Spontaneous
  Country: US (occurrence: US)
  Receive Date: 20150713
  Receipt Date: 20150715
  Transmission Date: 20151125
  Serious: No
  Sender: FDA-Public Use
  Company Number: US-PFIZER INC-2015232808

PATIENT
  Age: 56 Year
  Sex: Male
  Weight: 84 kg

DRUGS (1)
  1. CHANTIX [Suspect]
     Active Substance: VARENICLINE TARTRATE
     Indication: SMOKING CESSATION THERAPY
     Dosage: TWO PILLS PER DAY
     Dates: start: 20150401, end: 20150623

REACTIONS (4)
  - Headache [Not Recovered/Not Resolved]
  - Memory impairment [Unknown]
  - Abnormal dreams [Unknown]
  - Nausea [Unknown]

NARRATIVE: CASE EVENT DATE: 2015
